FAERS Safety Report 5053671-3 (Version None)
Quarter: 2006Q3

REPORT INFORMATION
  Report Type: 
  Country: None (occurrence: None)
  Receive Date: 20060718
  Receipt Date: 20060704
  Transmission Date: 20061208
  Serious: Yes (Hospitalization)
  Sender: FDA-Public Use
  Company Number: FR-AMGEN-UK185029

PATIENT
  Age: 80 Year
  Sex: Female
  Weight: 40 kg

DRUGS (5)
  1. ARANESP [Suspect]
     Indication: ANAEMIA OF MALIGNANT DISEASE
     Route: 058
     Dates: start: 20060325
  2. CORTANCYL [Suspect]
     Route: 048
     Dates: start: 20060325, end: 20060517
  3. VASTAREL [Suspect]
     Route: 048
     Dates: end: 20060506
  4. FUMAFER [Suspect]
     Route: 048
     Dates: start: 20060325
  5. ALKERAN [Suspect]
     Route: 048
     Dates: start: 20060325, end: 20060517

REACTIONS (2)
  - NEUTROPENIA [None]
  - THROMBOCYTOPENIA [None]
